FAERS Safety Report 18744018 (Version 1)
Quarter: 2021Q1

REPORT INFORMATION
  Report Type: Spontaneous
  Country: DE (occurrence: DE)
  Receive Date: 20210114
  Receipt Date: 20210114
  Transmission Date: 20210419
  Serious: Yes (Other)
  Sender: FDA-Public Use
  Company Number: DE-BAXTER-2021BAX000904

PATIENT
  Age: 59 Year
  Sex: Female

DRUGS (15)
  1. ENDOXAN LYOPHILISAT [Suspect]
     Active Substance: CYCLOPHOSPHAMIDE
     Indication: CENTRAL NERVOUS SYSTEM LYMPHOMA
     Dosage: CYCLE B, DAY 2
     Route: 042
  2. DEXAMETHASONE. [Suspect]
     Active Substance: DEXAMETHASONE
     Dosage: BAS CYCLE B, DAY 1 AND 2
     Route: 048
  3. METHOTREXATE. [Suspect]
     Active Substance: METHOTREXATE
     Dosage: CYCLE B, DAY 1, 2
     Route: 050
  4. ARA?C [Suspect]
     Active Substance: CYTARABINE
     Indication: CENTRAL NERVOUS SYSTEM LYMPHOMA
     Dosage: CYCLE C, DAY 1 AND 2, OVER 3 HOURS PER INFUSION
     Route: 042
  5. PREDNISOLONE. [Suspect]
     Active Substance: PREDNISOLONE
     Indication: CENTRAL NERVOUS SYSTEM LYMPHOMA
     Dosage: CYCLE A, DAY 1 AND 2
     Route: 050
  6. HOLOXAN [Suspect]
     Active Substance: IFOSFAMIDE
     Indication: CENTRAL NERVOUS SYSTEM LYMPHOMA
     Dosage: CYCLE A, DAY 2
     Route: 042
  7. METHOTREXATE. [Suspect]
     Active Substance: METHOTREXATE
     Indication: CENTRAL NERVOUS SYSTEM LYMPHOMA
     Dosage: CYCLE A, DAY 1
     Route: 042
  8. METHOTREXATE. [Suspect]
     Active Substance: METHOTREXATE
     Dosage: CYCLE B, DAY 1, 0.5 G/M2 BSA OVER 30 MIN AND 4.5 G/M2 BSA OVER 23.5 HOURS PER INFUSION
     Route: 042
  9. DEXAMETHASONE. [Suspect]
     Active Substance: DEXAMETHASONE
     Dosage: CYCLE C, DAY 1 AND 2
     Route: 048
  10. VINCRISTIN [Suspect]
     Active Substance: VINCRISTINE
     Dosage: CYCLE B, DAY 1
     Route: 042
  11. VINCRISTIN [Suspect]
     Active Substance: VINCRISTINE
     Indication: CENTRAL NERVOUS SYSTEM LYMPHOMA
     Dosage: CYCLE A, DAY 1
     Route: 042
  12. METHOTREXATE. [Suspect]
     Active Substance: METHOTREXATE
     Dosage: CYCLE A, DAY 1 AND 2
     Route: 050
  13. DEXAMETHASONE. [Suspect]
     Active Substance: DEXAMETHASONE
     Indication: CENTRAL NERVOUS SYSTEM LYMPHOMA
     Dosage: BAS CYCLE A, DAY 1 AND 2
     Route: 048
  14. PREDNISOLONE. [Suspect]
     Active Substance: PREDNISOLONE
     Dosage: CYCLE B, DAY 1 AND 2
     Route: 050
  15. VINDESINE [Suspect]
     Active Substance: VINDESINE
     Indication: CENTRAL NERVOUS SYSTEM LYMPHOMA
     Dosage: CYCLE C, DAY 1
     Route: 042

REACTIONS (4)
  - Thrombocytopenia [Unknown]
  - Alopecia areata [Unknown]
  - Leukopenia [Unknown]
  - Duodenal ulcer perforation [Unknown]
